FAERS Safety Report 8539887-X (Version None)
Quarter: 2012Q3

REPORT INFORMATION
  Report Type: 
  Country: None (occurrence: None)
  Receive Date: 20120726
  Receipt Date: 20120720
  Transmission Date: 20120928
  Serious: No
  Sender: FDA-Public Use
  Company Number: US-B.I. PHARMACEUTICALS,INC./RIDGEFIELD-2012-BP-16295PF

PATIENT
  Sex: Male

DRUGS (6)
  1. LYRICA [Concomitant]
  2. HUMALOG [Concomitant]
  3. NEURONTIN [Concomitant]
  4. LEVEMIR [Concomitant]
  5. SPIRIVA [Suspect]
  6. PLAVIX [Concomitant]

REACTIONS (1)
  - GENERAL PHYSICAL HEALTH DETERIORATION [None]
